FAERS Safety Report 11785337 (Version 1)
Quarter: 2015Q4

REPORT INFORMATION
  Report Type: Spontaneous
  Country: US (occurrence: None)
  Receive Date: 20151125
  Receipt Date: 20151125
  Transmission Date: 20160305
  Serious: No
  Sender: FDA-Public Use
  Company Number: None

PATIENT
  Sex: Male

DRUGS (13)
  1. LISINOPRIL. [Concomitant]
     Active Substance: LISINOPRIL
  2. SULFAMETHOXAZOLE-TRIMETHOPRIM (SMZ) [Suspect]
     Active Substance: SULFAMETHOXAZOLE\TRIMETHOPRIM
     Indication: PRURITUS
     Dosage: 800MG/160MG
     Dates: start: 20150908
  3. GLUCOSE [Concomitant]
     Active Substance: DEXTROSE
  4. ASPIRIN. [Concomitant]
     Active Substance: ASPIRIN
  5. CALCIUM POLYCARBOPHIL [Concomitant]
     Active Substance: CALCIUM POLYCARBOPHIL
  6. HYDROCHLOROTHIAZIDE. [Concomitant]
     Active Substance: HYDROCHLOROTHIAZIDE
  7. PIOGLITAZONE HCI [Concomitant]
  8. HALDOL [Concomitant]
     Active Substance: HALOPERIDOL
  9. C-PAP [Concomitant]
  10. METFORMIN [Concomitant]
     Active Substance: METFORMIN HYDROCHLORIDE
  11. ATORVASTATIN [Concomitant]
     Active Substance: ATORVASTATIN
  12. IBUPROFEN. [Concomitant]
     Active Substance: IBUPROFEN
  13. REMERON [Concomitant]
     Active Substance: MIRTAZAPINE

REACTIONS (7)
  - Pruritus [None]
  - Paraesthesia [None]
  - Diarrhoea [None]
  - Skin exfoliation [None]
  - Eye swelling [None]
  - Hypoaesthesia [None]
  - Wheezing [None]

NARRATIVE: CASE EVENT DATE: 20150908
